FAERS Safety Report 19689231 (Version 1)
Quarter: 2021Q3

REPORT INFORMATION
  Report Type: Spontaneous
  Country: CA (occurrence: CA)
  Receive Date: 20210812
  Receipt Date: 20210812
  Transmission Date: 20211014
  Serious: Yes (Other)
  Sender: FDA-Public Use
  Company Number: CA-TEVA-2021-CA-1939539

PATIENT
  Age: 81 Year
  Sex: Male

DRUGS (4)
  1. MIDODRINE [Concomitant]
     Active Substance: MIDODRINE
  2. APIXABAN [Concomitant]
     Active Substance: APIXABAN
  3. POTASSIUM [Concomitant]
     Active Substance: POTASSIUM
  4. METOPROLOL (TYPE L) [Suspect]
     Active Substance: METOPROLOL TARTRATE
     Indication: ARRHYTHMIA
     Dosage: 100 MILLIGRAM DAILY;
     Route: 048

REACTIONS (4)
  - Feeling of body temperature change [Unknown]
  - Hallucination [Unknown]
  - Pulmonary congestion [Unknown]
  - Arthralgia [Unknown]
